FAERS Safety Report 5942924-X (Version None)
Quarter: 2008Q4

REPORT INFORMATION
  Report Type: 
  Country: None (occurrence: None)
  Receive Date: 20081103
  Receipt Date: 20081020
  Transmission Date: 20090506
  Serious: Yes (Hospitalization, Other)
  Sender: FDA-Public Use
  Company Number: 235699J08USA

PATIENT
  Age: 51 Year
  Sex: Female

DRUGS (7)
  1. REBIF [Suspect]
     Indication: MULTIPLE SCLEROSIS
     Dosage: 44 MCG, 3 IN 1 WEEKS, SUBCUTANEOUS
     Route: 058
     Dates: start: 20060705
  2. PREDNISONE [Concomitant]
  3. VISTARIL [Concomitant]
  4. LEXAPRO [Concomitant]
  5. KLONOPIN [Concomitant]
  6. ATENOLOL [Concomitant]
  7. IBUPROFEN [Concomitant]

REACTIONS (8)
  - ABDOMINAL PAIN [None]
  - CONDITION AGGRAVATED [None]
  - DRY EYE [None]
  - EYE PRURITUS [None]
  - EYE SWELLING [None]
  - FATIGUE [None]
  - MULTIPLE SCLEROSIS [None]
  - UNEVALUABLE EVENT [None]
